FAERS Safety Report 9016030 (Version 2)
Quarter: 2013Q2

REPORT INFORMATION
  Report Type: Spontaneous
  Country: MY (occurrence: MY)
  Receive Date: 20130116
  Receipt Date: 20130621
  Transmission Date: 20140414
  Serious: Yes (Other)
  Sender: FDA-Public Use
  Company Number: MY-ABBOTT-13P-101-1033319-00

PATIENT
  Age: 38 Year
  Sex: Female

DRUGS (3)
  1. LUCRIN [Suspect]
     Indication: OVARIAN MASS
     Route: 030
  2. WARFARIN [Concomitant]
     Indication: THROMBOSIS PROPHYLAXIS
     Dosage: REDUCED
  3. WARFARIN [Concomitant]
     Indication: ANTICOAGULANT THERAPY

REACTIONS (1)
  - International normalised ratio increased [Recovered/Resolved]
